FAERS Safety Report 8231862-8 (Version None)
Quarter: 2012Q1

REPORT INFORMATION
  Report Type: 
  Country: None (occurrence: None)
  Receive Date: 20120323
  Receipt Date: 20120312
  Transmission Date: 20120608
  Serious: Yes (Death)
  Sender: FDA-Public Use
  Company Number: RS-ROCHE-1051349

PATIENT
  Age: 52 Year
  Sex: Female

DRUGS (4)
  1. METALYSE [Suspect]
     Indication: MYOCARDIAL INFARCTION
     Route: 042
     Dates: start: 20120303, end: 20120303
  2. ENOXAPARIN SODIUM [Concomitant]
     Route: 058
  3. PLAVIX [Concomitant]
  4. ASPIRIN [Concomitant]
     Dates: start: 20120303

REACTIONS (1)
  - DEATH [None]
